FAERS Safety Report 16795037 (Version 2)
Quarter: 2019Q4

REPORT INFORMATION
  Report Type: Spontaneous
  Country: US (occurrence: US)
  Receive Date: 20190911
  Receipt Date: 20191113
  Transmission Date: 20200122
  Serious: No
  Sender: FDA-Public Use
  Company Number: US-PFIZER INC-2019391684

PATIENT
  Age: 12 Year
  Sex: Female

DRUGS (1)
  1. EUCRISA [Suspect]
     Active Substance: CRISABOROLE
     Indication: DERMATITIS ATOPIC
     Dosage: UNK
     Route: 061

REACTIONS (5)
  - Application site pain [Unknown]
  - Condition aggravated [Unknown]
  - Skin disorder [Unknown]
  - Pruritus [Unknown]
  - Skin fissures [Unknown]
